FAERS Safety Report 5729390-4 (Version None)
Quarter: 2008Q2

REPORT INFORMATION
  Report Type: 
  Country: None (occurrence: None)
  Receive Date: 20080430
  Receipt Date: 20080208
  Transmission Date: 20081010
  Serious: No
  Sender: FDA-Public Use
  Company Number: 2008PV034257

PATIENT
  Sex: Female

DRUGS (12)
  1. SYMLIN [Suspect]
     Indication: TYPE 1 DIABETES MELLITUS
     Dosage: 36 MCG;TID;SC
     Route: 058
     Dates: start: 20060619, end: 20061127
  2. LANTUS [Concomitant]
  3. NOVOLOG [Concomitant]
  4. ASPIRIN [Concomitant]
  5. FERROUS SULFATE TAB [Concomitant]
  6. PREMPRO 0.3/1.5 [Concomitant]
  7. VITAMIN D [Concomitant]
  8. CALCIUM [Concomitant]
  9. SYNTHROID [Concomitant]
  10. VASOTEC [Concomitant]
  11. HYDROCHLOROTHIAZIDE [Concomitant]
  12. ALLEGRA [Concomitant]

REACTIONS (5)
  - COLITIS COLLAGENOUS [None]
  - DIARRHOEA [None]
  - GASTRITIS [None]
  - OVERGROWTH BACTERIAL [None]
  - WEIGHT DECREASED [None]
